FAERS Safety Report 9322265 (Version 2)
Quarter: 2013Q2

REPORT INFORMATION
  Report Type: Spontaneous
  Country: US (occurrence: US)
  Receive Date: 20130531
  Receipt Date: 20130620
  Transmission Date: 20140414
  Serious: Yes (Other)
  Sender: FDA-Public Use
  Company Number: US-JNJFOC-20130514786

PATIENT
  Sex: Female
  Weight: 63.5 kg

DRUGS (5)
  1. STELARA [Suspect]
     Indication: GUTTATE PSORIASIS
     Route: 058
     Dates: start: 20110929, end: 20130522
  2. TACLONEX [Concomitant]
     Indication: PSORIASIS
     Route: 065
  3. CLOBEX [Concomitant]
     Indication: PSORIASIS
     Dosage: 0.05%
     Route: 061
  4. NAFTIN [Concomitant]
     Indication: TINEA INFECTION
     Dosage: 1%
     Route: 061
  5. ELIDEL [Concomitant]
     Indication: PSORIASIS
     Dosage: 1%
     Route: 061

REACTIONS (4)
  - Streptococcal infection [Unknown]
  - Guttate psoriasis [Unknown]
  - Off label use [Unknown]
  - No therapeutic response [Recovered/Resolved]
